FAERS Safety Report 6412670-7 (Version None)
Quarter: 2009Q4

REPORT INFORMATION
  Report Type: 
  Country: None (occurrence: None)
  Receive Date: 20091023
  Receipt Date: 20091015
  Transmission Date: 20100525
  Serious: Yes (Hospitalization)
  Sender: FDA-Public Use
  Company Number: PHHY2009CH38796

PATIENT
  Sex: Male

DRUGS (10)
  1. CERTICAN [Suspect]
     Indication: PROPHYLAXIS AGAINST TRANSPLANT REJECTION
     Dosage: 11.5 MG, QD
     Dates: start: 20090625
  2. NEXIUM [Suspect]
     Dosage: 1 DOSAGE FORM/DAY
  3. PREDNISONE [Concomitant]
     Dosage: 15 MG/DAY
  4. CELLCEPT [Concomitant]
     Dosage: 750 MG, TID
  5. TORSEMIDE [Concomitant]
     Dosage: 10 MG/DAY
  6. NORVASC [Concomitant]
     Dosage: 10 MG/DAY
  7. CARDURA [Concomitant]
     Dosage: 4 MG/DAY
  8. REMERON [Concomitant]
     Dosage: 30 MG/DAY
  9. LEVEMIR [Concomitant]
     Dosage: 20 IU/DAY
  10. NOVORAPID [Concomitant]

REACTIONS (6)
  - ALANINE AMINOTRANSFERASE INCREASED [None]
  - ASPARTATE AMINOTRANSFERASE INCREASED [None]
  - BLOOD ALKALINE PHOSPHATASE INCREASED [None]
  - GAMMA-GLUTAMYLTRANSFERASE INCREASED [None]
  - LIVER INJURY [None]
  - PNEUMONIA [None]
